FAERS Safety Report 10245334 (Version 1)
Quarter: 2014Q2

REPORT INFORMATION
  Report Type: Spontaneous
  Country: US (occurrence: US)
  Receive Date: 20140618
  Receipt Date: 20140618
  Transmission Date: 20141212
  Serious: No
  Sender: FDA-Public Use
  Company Number: US-TEVA-483623USA

PATIENT
  Age: 57 Year
  Sex: Female
  Weight: 55.84 kg

DRUGS (6)
  1. AZILECT [Suspect]
     Indication: PARKINSON^S DISEASE
     Dates: start: 201312
  2. SINEMET [Suspect]
  3. ESTROGEN [Concomitant]
     Indication: HORMONE REPLACEMENT THERAPY
  4. PROGESTERONE [Concomitant]
     Indication: HORMONE REPLACEMENT THERAPY
  5. TESTOSTERONE [Concomitant]
     Indication: HORMONE REPLACEMENT THERAPY
  6. TRAZODONE [Concomitant]
     Indication: SLEEP DISORDER

REACTIONS (3)
  - Alopecia [Not Recovered/Not Resolved]
  - Nausea [Not Recovered/Not Resolved]
  - Syncope [Recovered/Resolved]
